APPROVED DRUG PRODUCT: SULFAMETHOXAZOLE AND TRIMETHOPRIM
Active Ingredient: SULFAMETHOXAZOLE; TRIMETHOPRIM
Strength: 400MG;80MG
Dosage Form/Route: TABLET;ORAL
Application: N018946 | Product #001
Applicant: HEATHER DRUG CO INC
Approved: Aug 10, 1984 | RLD: No | RS: No | Type: DISCN